FAERS Safety Report 11734706 (Version 1)
Quarter: 2015Q4

REPORT INFORMATION
  Report Type: Spontaneous
  Country: US (occurrence: US)
  Receive Date: 20151113
  Receipt Date: 20151113
  Transmission Date: 20160304
  Serious: No
  Sender: FDA-Public Use
  Company Number: US-ASTRAZENECA-2015SF08061

PATIENT

DRUGS (2)
  1. IBRANCE [Suspect]
     Active Substance: PALBOCICLIB
     Dosage: NON AZ PRODUCT
     Route: 065
  2. FULVESTRANT [Suspect]
     Active Substance: FULVESTRANT
     Route: 030

REACTIONS (1)
  - Pancytopenia [Unknown]
